FAERS Safety Report 11352280 (Version 1)
Quarter: 2015Q3

REPORT INFORMATION
  Report Type: Spontaneous
  Country: US (occurrence: US)
  Receive Date: 20150807
  Receipt Date: 20150807
  Transmission Date: 20151125
  Serious: No
  Sender: FDA-Public Use
  Company Number: US-JNJFOC-20150714613

PATIENT
  Age: 64 Year
  Sex: Female
  Weight: 54.43 kg

DRUGS (3)
  1. MENS ROGAINE EXTRA STRENGTH [Suspect]
     Active Substance: MINOXIDIL
     Route: 061
  2. DOXORUBICIN HCL [Concomitant]
     Active Substance: DOXORUBICIN HYDROCHLORIDE
     Route: 065
  3. MENS ROGAINE EXTRA STRENGTH [Suspect]
     Active Substance: MINOXIDIL
     Indication: ALOPECIA
     Dosage: TWICE
     Route: 061

REACTIONS (3)
  - Alopecia [Not Recovered/Not Resolved]
  - Drug administered at inappropriate site [Not Recovered/Not Resolved]
  - Wrong patient received medication [Not Recovered/Not Resolved]
